FAERS Safety Report 25365851 (Version 3)
Quarter: 2025Q4

REPORT INFORMATION
  Report Type: Report from Study
  Country: US (occurrence: US)
  Receive Date: 20250528
  Receipt Date: 20251019
  Transmission Date: 20260117
  Serious: Yes (Hospitalization, Other)
  Sender: ABBVIE
  Company Number: US-ABBVIE-6299334

PATIENT
  Age: 58 Year
  Sex: Female
  Weight: 76 kg

DRUGS (2)
  1. RINVOQ [Suspect]
     Active Substance: UPADACITINIB
     Indication: Ankylosing spondylitis
     Dosage: STRENGTH 15 MG
     Route: 048
     Dates: start: 20250204, end: 20250302
  2. RINVOQ [Suspect]
     Active Substance: UPADACITINIB
     Indication: Ankylosing spondylitis
     Dosage: STRENGTH 15 MG
     Route: 048
     Dates: start: 20250417

REACTIONS (11)
  - Pancreatitis [Recovered/Resolved]
  - Renal artery occlusion [Not Recovered/Not Resolved]
  - Hypertension [Recovering/Resolving]
  - Loss of personal independence in daily activities [Recovered/Resolved]
  - Abdominal pain [Recovered/Resolved]
  - Dysstasia [Recovered/Resolved]
  - Ankylosing spondylitis [Recovered/Resolved]
  - Autoimmune pancreatitis [Recovering/Resolving]
  - Arthralgia [Recovered/Resolved]
  - Joint swelling [Recovered/Resolved]
  - Discomfort [Recovered/Resolved]

NARRATIVE: CASE EVENT DATE: 20250228
